FAERS Safety Report 17791947 (Version 2)
Quarter: 2020Q2

REPORT INFORMATION
  Report Type: Report from Study
  Country: US (occurrence: US)
  Receive Date: 20200515
  Receipt Date: 20200522
  Transmission Date: 20200714
  Serious: Yes (Death, Life-Threatening, Hospitalization, Other)
  Sender: FDA-Public Use
  Company Number: US-BRISTOL-MYERS SQUIBB COMPANY-BMS-2020-036540

PATIENT
  Age: 80 Year
  Sex: Female
  Weight: 57.6 kg

DRUGS (2)
  1. NIVOLUMAB [Suspect]
     Active Substance: NIVOLUMAB
     Indication: THYROID CANCER
     Dosage: 3 MILLIGRAM/KILOGRAM, Q2WK
     Route: 042
     Dates: start: 20180410, end: 20200402
  2. IPILIMUMAB [Suspect]
     Active Substance: IPILIMUMAB
     Indication: THYROID CANCER
     Dosage: 1 MILLIGRAM/KILOGRAM, Q6WK
     Route: 042
     Dates: start: 20180419, end: 20200402

REACTIONS (4)
  - Seizure [Unknown]
  - Abdominal pain [Unknown]
  - Aortic aneurysm [Unknown]
  - Aortic aneurysm rupture [Fatal]

NARRATIVE: CASE EVENT DATE: 20200505
